FAERS Safety Report 25120749 (Version 1)
Quarter: 2025Q1

REPORT INFORMATION
  Report Type: Spontaneous
  Country: US (occurrence: US)
  Receive Date: 20250325
  Receipt Date: 20250325
  Transmission Date: 20250409
  Serious: No
  Sender: JOHNSON AND JOHNSON
  Company Number: US-JNJFOC-20250364947

PATIENT
  Sex: Female

DRUGS (2)
  1. SPRAVATO [Suspect]
     Active Substance: ESKETAMINE
     Indication: Product used for unknown indication
     Route: 045
     Dates: start: 202401
  2. SPRAVATO [Suspect]
     Active Substance: ESKETAMINE
     Route: 045

REACTIONS (1)
  - Memory impairment [Unknown]
